FAERS Safety Report 5362039-1 (Version None)
Quarter: 2007Q2

REPORT INFORMATION
  Report Type: 
  Country: None (occurrence: None)
  Receive Date: 20070615
  Receipt Date: 20070604
  Transmission Date: 20071010
  Serious: Yes (Death)
  Sender: FDA-Public Use
  Company Number: 07H-163-0312708-00

PATIENT
  Age: 36 Year
  Sex: Female

DRUGS (10)
  1. PROPOFOL [Suspect]
     Indication: CONVULSION
     Dosage: SEE IMAGE
  2. PROPOFOL [Suspect]
     Indication: MYOCLONUS
     Dosage: SEE IMAGE
  3. PROPOFOL [Suspect]
     Indication: SEDATIVE THERAPY
     Dosage: SEE IMAGE
  4. LORAZEPAM [Concomitant]
  5. PHENOBARBITAL TAB [Concomitant]
  6. DIAZEPAM [Concomitant]
  7. VALPROATE SODIUM [Concomitant]
  8. FENTANYL [Concomitant]
  9. MIDAZOLAM HCL [Concomitant]
  10. PHENYLEPHRINE (PHENYLEPHRINE) [Concomitant]

REACTIONS (33)
  - ACIDOSIS [None]
  - BRADYARRHYTHMIA [None]
  - BRONCHOPNEUMONIA [None]
  - CARDIAC ARREST [None]
  - CARDIOMYOPATHY [None]
  - CEREBRAL DISORDER [None]
  - EJECTION FRACTION DECREASED [None]
  - ELECTROCARDIOGRAM T WAVE AMPLITUDE DECREASED [None]
  - ELECTROMECHANICAL DISSOCIATION [None]
  - EMBOLISM [None]
  - EPILEPSY [None]
  - GENERAL PHYSICAL HEALTH DETERIORATION [None]
  - GLIOSIS [None]
  - HAEMODIALYSIS [None]
  - HEPATIC CONGESTION [None]
  - HYPERCAPNIA [None]
  - HYPERTROPHY [None]
  - HYPOTENSION [None]
  - HYPOXIA [None]
  - INFUSION RELATED REACTION [None]
  - MUSCLE DISORDER [None]
  - MYOCLONUS [None]
  - OEDEMA [None]
  - OSTEONECROSIS [None]
  - PROPOFOL INFUSION SYNDROME [None]
  - PULMONARY CONGESTION [None]
  - RENAL FAILURE ACUTE [None]
  - RHABDOMYOLYSIS [None]
  - SPLEEN CONGESTION [None]
  - STATUS EPILEPTICUS [None]
  - SWELLING [None]
  - TACHYCARDIA [None]
  - VENTRICULAR DYSFUNCTION [None]
